FAERS Safety Report 17514033 (Version 1)
Quarter: 2020Q1

REPORT INFORMATION
  Report Type: Spontaneous
  Country: CN (occurrence: CN)
  Receive Date: 20200306
  Receipt Date: 20200306
  Transmission Date: 20200409
  Serious: Yes (Death, Hospitalization, Other)
  Sender: FDA-Public Use
  Company Number: CN-SUN PHARMACEUTICAL INDUSTRIES LTD-2020R1-239661

PATIENT
  Age: 40 Year
  Sex: Female

DRUGS (5)
  1. METHOTREXATE. [Suspect]
     Active Substance: METHOTREXATE
     Indication: PRIMARY CARDIAC LYMPHOMA
     Dosage: 4,800 MG AS A CONTINUOUS INTRAVENOUS DRIP ON DAY 1
     Route: 042
  2. PEGASPARGASE [Suspect]
     Active Substance: PEGASPARGASE
     Indication: PRIMARY CARDIAC LYMPHOMA
     Dosage: GASE 3,750 IU AS AN INTRAMUSCULAR INJECTION ON DAY 1
     Route: 030
  3. DEXAMETHASONE. [Suspect]
     Active Substance: DEXAMETHASONE
     Indication: PRIMARY CARDIAC LYMPHOMA
     Dosage: 40 MG AS AN INTRAVENOUS DRIP FROM DAY 1 TO 4
     Route: 042
  4. GEMCITABINE. [Suspect]
     Active Substance: GEMCITABINE
     Indication: PRIMARY CARDIAC LYMPHOMA
     Dosage: 1,500 MG AS AN INTRAVENOUS DRIP ON DAY 1 AND DAY 8
     Route: 042
  5. OXALIPLATIN. [Suspect]
     Active Substance: OXALIPLATIN
     Indication: PRIMARY CARDIAC LYMPHOMA
     Dosage: 150 MG AS AN INTRAVENOUS DRIP ON DAY 1
     Route: 042

REACTIONS (6)
  - Blood fibrinogen increased [Unknown]
  - Gastrointestinal haemorrhage [Unknown]
  - Multiple organ dysfunction syndrome [Fatal]
  - Bone marrow failure [Unknown]
  - Pneumonia [Unknown]
  - Neutropenia [Unknown]
